FAERS Safety Report 7108480-8 (Version None)
Quarter: 2010Q4

REPORT INFORMATION
  Report Type: 
  Country: None (occurrence: None)
  Receive Date: 20101117
  Receipt Date: 20101110
  Transmission Date: 20110411
  Serious: Yes (Hospitalization, Other)
  Sender: FDA-Public Use
  Company Number: US-SANOFI-AVENTIS-2010SA068821

PATIENT
  Age: 85 Year
  Sex: Male

DRUGS (3)
  1. LANTUS [Suspect]
     Dosage: DOSE:30 UNIT(S)
     Route: 058
  2. LANTUS [Suspect]
     Dosage: 12 TO 15 UNITS IN THE MORNING AFTER BREAKFAST
     Route: 058
  3. LANTUS [Suspect]
     Dosage: 12 TO 15 UNITS IN THE MORNING AFTER BREAKFAST
     Route: 058

REACTIONS (3)
  - FALL [None]
  - LIMB INJURY [None]
  - SKELETAL INJURY [None]
